FAERS Safety Report 21796666 (Version 2)
Quarter: 2023Q1

REPORT INFORMATION
  Report Type: Report from Study
  Country: DK (occurrence: DK)
  Receive Date: 20221229
  Receipt Date: 20230124
  Transmission Date: 20230417
  Serious: Yes (Death, Hospitalization, Other)
  Sender: FDA-Public Use
  Company Number: DK-CELLTRION INC.-2022DK021815

PATIENT

DRUGS (9)
  1. RITUXIMAB [Suspect]
     Active Substance: RITUXIMAB
     Indication: Follicular lymphoma
     Dosage: 700 MG, DAY 1 OF EACH 28 DAY CYCLE FOR CYCLES 2 TO 5. THE LAST DOSE OF RITUXIMAB PRIOR TO THE SAE WA
     Route: 042
     Dates: start: 20220330, end: 20220525
  2. TAFASITAMAB-CXIX [Suspect]
     Active Substance: TAFASITAMAB-CXIX
     Indication: Follicular lymphoma
     Dosage: DAYS 1,8,15,22 OF CYCLES 1 TO 3 AND DAYS 1 AND 15 OF CYCLES 4 TO 12. THE LAST DOSE OF INCMOR00208/PL
     Route: 048
     Dates: start: 20220330, end: 20220525
  3. LENALIDOMIDE [Suspect]
     Active Substance: LENALIDOMIDE
     Indication: Follicular lymphoma
     Dosage: 10 MG, DAYS 1-21 OF EACH 28 DAY CYCLE. THE LAST DOSE OF LENALIDOMIDE PRIOR TO THE SAE WAS TAKEN ON 1
     Dates: start: 20220330, end: 20220525
  4. AMOXICILLIN [Concomitant]
     Active Substance: AMOXICILLIN
     Dosage: UNK
     Dates: start: 20220511, end: 20220518
  5. ALLOPURINOL [Concomitant]
     Active Substance: ALLOPURINOL
     Dosage: UNK
     Dates: start: 20220330
  6. PANTOPRAZOLE SODIUM [Concomitant]
     Active Substance: PANTOPRAZOLE SODIUM
     Dosage: UNK
     Dates: start: 20201023
  7. AMLODIPINE BESYLATE [Concomitant]
     Active Substance: AMLODIPINE BESYLATE
     Dosage: UNK
     Dates: start: 20170403
  8. PREDNISOLONE [Concomitant]
     Active Substance: PREDNISOLONE
     Dosage: UNK
     Dates: start: 20220330
  9. ACYCLOVIR [Concomitant]
     Active Substance: ACYCLOVIR
     Dosage: UNK
     Dates: start: 20220330

REACTIONS (2)
  - Pneumonia [Fatal]
  - Pneumonia [Recovered/Resolved]

NARRATIVE: CASE EVENT DATE: 20220531
